FAERS Safety Report 5162291-1 (Version None)
Quarter: 2006Q4

REPORT INFORMATION
  Report Type: 
  Country: None (occurrence: None)
  Receive Date: 20060919
  Receipt Date: 20060630
  Transmission Date: 20070319
  Serious: No
  Sender: FDA-Public Use
  Company Number: 2006US001494

PATIENT
  Age: 69 Year
  Sex: Female

DRUGS (2)
  1. VESICARE [Suspect]
     Indication: HYPERTONIC BLADDER
     Dosage: 10 MG, ORAL
     Route: 048
     Dates: start: 20060512, end: 20060626
  2. BONIVA (IBANDRONATE SODIUM) [Concomitant]

REACTIONS (1)
  - OESOPHAGEAL PAIN [None]
